FAERS Safety Report 8865616 (Version 1)
Quarter: 2012Q4

REPORT INFORMATION
  Report Type: 
  Country: US (occurrence: US)
  Receive Date: 20121024
  Receipt Date: 20121024
  Transmission Date: 20130627
  Serious: No
  Sender: FDA-Public Use
  Company Number: US-AMGEN-USASP2012004020

PATIENT
  Age: 48 Year
  Sex: Female

DRUGS (18)
  1. ENBREL [Suspect]
     Indication: PRODUCT USED FOR UNKNOWN INDICATION
     Dosage: 50 mg, 2 times/wk
     Route: 058
  2. TRAZODONE [Concomitant]
     Dosage: 50 mg, UNK
  3. CYMBALTA [Concomitant]
     Dosage: 20 mg, UNK
  4. OXYCODONE WITH APAP [Concomitant]
     Dosage: 5 mg, UNK
  5. TIZANIDINE [Concomitant]
     Dosage: 2 mg, UNK
  6. ACYCLOVIR                          /00587301/ [Concomitant]
     Dosage: 200 mg, UNK
  7. LYRICA [Concomitant]
     Dosage: 100 mg, UNK
  8. DIAZEPAM [Concomitant]
     Dosage: 2 mg, UNK
  9. FUROSEMIDE [Concomitant]
     Dosage: 20 mg, UNK
  10. FOLIC ACID [Concomitant]
     Dosage: UNK
  11. VOLTAREN                           /00372301/ [Concomitant]
     Dosage: 1 %, UNK
  12. CLOBETASOL E [Concomitant]
     Dosage: 0.05 %, UNK
  13. MULTIVITAMIN                       /00097801/ [Concomitant]
  14. VITAMIN D3 [Concomitant]
     Dosage: UNK
  15. BISACODYL [Concomitant]
     Dosage: 5 mg, UNK
  16. OXYCONTIN [Concomitant]
     Dosage: 10 mg, UNK
  17. CO Q 10 [Concomitant]
     Dosage: 100 mg, UNK
  18. ZEGERID                            /00661201/ [Concomitant]
     Dosage: UNK

REACTIONS (2)
  - Influenza [Unknown]
  - Tooth abscess [Unknown]
